FAERS Safety Report 20127573 (Version 1)
Quarter: 2021Q4

REPORT INFORMATION
  Report Type: Spontaneous
  Country: US (occurrence: US)
  Receive Date: 20211129
  Receipt Date: 20211129
  Transmission Date: 20220303
  Serious: Yes (Hospitalization)
  Sender: FDA-Public Use
  Company Number: US-ALLERGAN-2139792US

PATIENT
  Sex: Female

DRUGS (3)
  1. RESTASIS [Suspect]
     Active Substance: CYCLOSPORINE
     Indication: Dry eye
     Dosage: ONE VIAL IN EACH EYE IN THE MORNING AND NIGHT
     Route: 047
     Dates: start: 20210305
  2. VITAMIN D NOS [Suspect]
     Active Substance: VITAMIN D NOS
     Indication: Product used for unknown indication
     Dosage: HIGH DOSE
  3. AZELASTINE [Concomitant]
     Active Substance: AZELASTINE
     Indication: Hypersensitivity
     Dosage: SHOT UP EACH NOSE MORNING AND NIGHT
     Route: 045

REACTIONS (6)
  - Back pain [Recovered/Resolved]
  - Nephrolithiasis [Recovered/Resolved]
  - Abdominal pain upper [Recovered/Resolved]
  - Blood test abnormal [Recovered/Resolved]
  - Hypervitaminosis D [Recovered/Resolved]
  - Eye disorder [Recovered/Resolved]
